FAERS Safety Report 5832796-6 (Version None)
Quarter: 2008Q3

REPORT INFORMATION
  Report Type: 
  Country: None (occurrence: None)
  Receive Date: 20080804
  Receipt Date: 20080721
  Transmission Date: 20090109
  Serious: Yes (Death)
  Sender: FDA-Public Use
  Company Number: FR-ROCHE-576943

PATIENT
  Sex: Male

DRUGS (15)
  1. CAPECITABINE [Suspect]
     Indication: METASTATIC GASTRIC CANCER
     Dosage: REPORTED AS D2-D5 1000MG/M2 X 2/DAY PER OS
     Route: 048
  2. EPIRUBICIN [Suspect]
     Indication: METASTATIC GASTRIC CANCER
     Dosage: REPORTED AS:50MG/M2 IN 45CC OF NACL 0.9% IN 1 H INFUSION MAX CUMULATIVE DOSE EPIRUBICINE 900MG/M2
     Route: 042
  3. CISPLATIN [Suspect]
     Indication: METASTATIC GASTRIC CANCER
     Dosage: REPORTED AS CISPLATINN 60 MG/M2 IV IN 250 CC OF NACL 0.9% IN 1 H INFUSION.
     Route: 042
  4. PARACETAMOL [Concomitant]
     Dates: start: 20080327
  5. ZOPHREN [Concomitant]
     Dates: start: 20080327
  6. ASPIRIN [Concomitant]
  7. NEXIUM [Concomitant]
     Dosage: REPORTED AS INEXIUM 40
  8. CRESTOR [Concomitant]
     Dosage: REPORTED AS CRESTOR 10
  9. ATHIMYL 30 [Concomitant]
  10. HAVLANE [Concomitant]
  11. XATRAL [Concomitant]
     Dosage: REPORTED AS: XATRAL LP 10
  12. XANAX [Concomitant]
     Dosage: REPORTED AS: XANAX 0.25
  13. FORLAX [Concomitant]
     Dates: start: 20080327
  14. FORTIMEL [Concomitant]
     Dates: start: 20080327
  15. MONO-TILDIEM LP [Concomitant]
     Dosage: REPORTED AS: MONOTILDIEM LP 301

REACTIONS (1)
  - GENERAL PHYSICAL HEALTH DETERIORATION [None]
